FAERS Safety Report 22803376 (Version 2)
Quarter: 2023Q4

REPORT INFORMATION
  Report Type: Spontaneous
  Country: US (occurrence: US)
  Receive Date: 20230809
  Receipt Date: 20231107
  Transmission Date: 20240110
  Serious: Yes (Other)
  Sender: FDA-Public Use
  Company Number: US-BRISTOL-MYERS SQUIBB COMPANY-2023-110595

PATIENT
  Age: 82 Year
  Sex: Female
  Weight: 60 kg

DRUGS (5)
  1. REBLOZYL [Suspect]
     Active Substance: LUSPATERCEPT-AAMT
     Indication: Myelodysplastic syndrome with ringed sideroblasts
     Dosage: FREQ: EVERY THREE WEEKS
     Route: 042
     Dates: end: 202307
  2. CALCIUM [Concomitant]
     Active Substance: CALCIUM
     Indication: Product used for unknown indication
     Dosage: FOREVER
  3. CAL D3 [CALCIUM;COLECALCIFEROL] [Concomitant]
     Indication: Product used for unknown indication
  4. VITAMIN B12 [Concomitant]
     Active Substance: CYANOCOBALAMIN
     Indication: Product used for unknown indication
  5. ARANESP [Concomitant]
     Active Substance: DARBEPOETIN ALFA
     Indication: Product used for unknown indication

REACTIONS (8)
  - Drug ineffective [Unknown]
  - Diarrhoea [Unknown]
  - Gastrointestinal disorder [Unknown]
  - Laboratory test abnormal [Unknown]
  - Blood disorder [Unknown]
  - Weight decreased [Unknown]
  - Haemoglobin decreased [Unknown]
  - Prescribed overdose [Unknown]
